FAERS Safety Report 4353832-2 (Version None)
Quarter: 2004Q2

REPORT INFORMATION
  Report Type: 
  Country: None (occurrence: None)
  Receive Date: 20040430
  Receipt Date: 20040216
  Transmission Date: 20050107
  Serious: Yes (Death)
  Sender: FDA-Public Use
  Company Number: 2004AP00882

PATIENT
  Age: 65 Year
  Sex: Male

DRUGS (14)
  1. IRESSA [Suspect]
     Indication: LUNG ADENOCARCINOMA
     Dosage: 250 MG DAILY PO
     Route: 048
     Dates: start: 20030909, end: 20030910
  2. IRESSA [Suspect]
     Indication: NON-SMALL CELL LUNG CANCER
     Dosage: 250 MG DAILY PO
     Route: 048
     Dates: start: 20030909, end: 20030910
  3. KADIAN ^ZENECA^ [Concomitant]
  4. DECADRON [Concomitant]
  5. GLYCEROL 2.6% [Concomitant]
  6. CISPLATIN [Concomitant]
  7. VINDESINE [Concomitant]
  8. CARBOPLATIN [Concomitant]
  9. PACLITAXEL [Concomitant]
  10. RADIATION THERAPY [Concomitant]
  11. MULTIVITAMIN ADDITIVE [Concomitant]
  12. GASTER [Concomitant]
  13. PRIMPERAN INJ [Concomitant]
  14. AMINOFLUID [Concomitant]

REACTIONS (13)
  - ALANINE AMINOTRANSFERASE INCREASED [None]
  - ASPARTATE AMINOTRANSFERASE INCREASED [None]
  - CHEST X-RAY ABNORMAL [None]
  - DRUG INEFFECTIVE [None]
  - DYSPNOEA [None]
  - GAMMA-GLUTAMYLTRANSFERASE INCREASED [None]
  - HEART RATE DECREASED [None]
  - LUNG DISORDER [None]
  - LUNG INFILTRATION [None]
  - PNEUMONIA [None]
  - RESTLESSNESS [None]
  - SOMNOLENCE [None]
  - WHITE BLOOD CELL COUNT INCREASED [None]
